FAERS Safety Report 10903474 (Version 1)
Quarter: 2015Q1

REPORT INFORMATION
  Report Type: Spontaneous
  Country: US (occurrence: US)
  Receive Date: 20150311
  Receipt Date: 20150311
  Transmission Date: 20150721
  Serious: Yes (Hospitalization, Other)
  Sender: FDA-Public Use
  Company Number: US-SUN PHARMACEUTICAL INDUSTRIES LTD-2012SUN00226

PATIENT

DRUGS (1)
  1. PHENYTOIN SODIUM ER CAPS 100MG [Suspect]
     Active Substance: PHENYTOIN SODIUM
     Indication: EPILEPSY
     Dosage: 100 MG, QID
     Route: 048
     Dates: start: 20120917

REACTIONS (3)
  - Gallbladder disorder [Unknown]
  - Seizure [Unknown]
  - Malaise [Unknown]

NARRATIVE: CASE EVENT DATE: 20120917
